FAERS Safety Report 4612680-6 (Version None)
Quarter: 2005Q1

REPORT INFORMATION
  Report Type: 
  Country: None (occurrence: None)
  Receive Date: 20050316
  Receipt Date: 20050316
  Transmission Date: 20050727
  Serious: Yes (Life-Threatening, Hospitalization)
  Sender: FDA-Public Use
  Company Number: None

PATIENT
  Age: 26 Year
  Sex: Male
  Weight: 85 kg

DRUGS (4)
  1. PROPOFOL [Suspect]
     Indication: SEDATION
     Dosage: 130 MCG/KG/MIN INTRAVENOUS
     Route: 042
     Dates: start: 20041120, end: 20041124
  2. FENTANYL [Concomitant]
  3. CLINDAMYCIN [Concomitant]
  4. CEFEPIME [Concomitant]

REACTIONS (12)
  - AIRWAY COMPLICATION OF ANAESTHESIA [None]
  - ARRHYTHMIA [None]
  - ELECTROCARDIOGRAM QRS COMPLEX PROLONGED [None]
  - ELECTROCARDIOGRAM T WAVE ABNORMAL [None]
  - HYPERKALAEMIA [None]
  - METABOLIC ACIDOSIS [None]
  - POST PROCEDURAL CELLULITIS [None]
  - POST PROCEDURAL COMPLICATION [None]
  - RETROPHARYNGEAL ABSCESS [None]
  - RHABDOMYOLYSIS [None]
  - SWELLING [None]
  - TOOTH EXTRACTION [None]
